FAERS Safety Report 20430424 (Version 1)
Quarter: 2022Q1

REPORT INFORMATION
  Report Type: Report from Study
  Country: US (occurrence: US)
  Receive Date: 20220204
  Receipt Date: 20220204
  Transmission Date: 20220423
  Serious: Yes (Hospitalization)
  Sender: FDA-Public Use
  Company Number: US-SERVIER-S20007753

PATIENT

DRUGS (12)
  1. PEGASPARGASE [Suspect]
     Active Substance: PEGASPARGASE
     Indication: Acute lymphocytic leukaemia
     Dosage: 2500 IU/M2, D6
     Route: 042
     Dates: start: 20200618, end: 20200618
  2. VINCRISTINE [Suspect]
     Active Substance: VINCRISTINE
     Indication: Acute lymphocytic leukaemia
     Dosage: 1.5 MG/M2, 1X/WEEK, D4, D11, D18, D25
     Route: 042
     Dates: start: 20200616, end: 20200707
  3. DEXAMETHASONE [Suspect]
     Active Substance: DEXAMETHASONE
     Indication: Acute lymphocytic leukaemia
     Dosage: 6 MG/M2, QD D4-25
     Route: 048
     Dates: start: 20200613, end: 20200714
  4. DOXORUBICIN [Suspect]
     Active Substance: DOXORUBICIN
     Indication: Acute lymphocytic leukaemia
     Dosage: 30 MG/M2, QD D4-5
     Route: 042
     Dates: start: 20200616, end: 20200617
  5. DEXRAZOXANE [Suspect]
     Active Substance: DEXRAZOXANE
     Indication: Acute lymphocytic leukaemia
     Dosage: 300 MG/M2, QD, D 4-5
     Route: 042
     Dates: start: 20200616, end: 20200617
  6. MERCAPTOPURINE [Suspect]
     Active Substance: MERCAPTOPURINE
     Indication: Acute lymphocytic leukaemia
     Dosage: 50 MG/M2, QD, D1-14
     Route: 048
     Dates: start: 20200716, end: 20200729
  7. CYTARABINE [Suspect]
     Active Substance: CYTARABINE
     Indication: Acute lymphocytic leukaemia
     Dosage: 75 MG/M2, D 1-4; 8-11
     Route: 042
     Dates: start: 20200716, end: 20200726
  8. CYTARABINE [Suspect]
     Active Substance: CYTARABINE
     Dosage: 40 MG, D1
     Route: 037
     Dates: start: 20200612, end: 20200612
  9. CYCLOPHOSPHAMIDE [Suspect]
     Active Substance: CYCLOPHOSPHAMIDE
     Indication: Acute lymphocytic leukaemia
     Dosage: 1000 MG/M2, ONE DOSE, D1
     Route: 042
     Dates: start: 20200716, end: 20200716
  10. METHOTREXATE [Suspect]
     Active Substance: METHOTREXATE
     Indication: Acute lymphocytic leukaemia
     Dosage: 12 MG, DAY 32 INDUCTION IA; DAY 1 INDUCTION IB
     Route: 037
     Dates: start: 20200630, end: 20200630
  11. METHOTREXATE [Suspect]
     Active Substance: METHOTREXATE
     Dosage: 12 MG/M2  ONE DOSE
     Route: 037
     Dates: start: 20200715, end: 20200715
  12. HYDROCORTISONE [Suspect]
     Active Substance: HYDROCORTISONE
     Indication: Acute lymphocytic leukaemia
     Dosage: 15 MG, ONE DOSE
     Route: 037
     Dates: start: 20200630, end: 20200630

REACTIONS (1)
  - Abdominal infection [Recovering/Resolving]

NARRATIVE: CASE EVENT DATE: 20200729
